FAERS Safety Report 7132018-2 (Version None)
Quarter: 2010Q4

REPORT INFORMATION
  Report Type: 
  Country: None (occurrence: None)
  Receive Date: 20101130
  Receipt Date: 20101130
  Transmission Date: 20110411
  Serious: No
  Sender: FDA-Public Use
  Company Number: None

PATIENT
  Age: 43 Year
  Sex: Female

DRUGS (1)
  1. LETAIRIS [Suspect]
     Indication: PULMONARY ARTERIAL HYPERTENSION
     Dosage: LETAIRIS 10MG DAILY ORALLY
     Route: 048
     Dates: start: 20100506, end: 20100801

REACTIONS (5)
  - ABDOMINAL DISCOMFORT [None]
  - ANAL CANCER [None]
  - BLOOD ELECTROLYTES ABNORMAL [None]
  - NAUSEA [None]
  - VOMITING [None]
